FAERS Safety Report 7042151-1 (Version None)
Quarter: 2010Q4

REPORT INFORMATION
  Report Type: 
  Country: None (occurrence: None)
  Receive Date: 20101013
  Receipt Date: 20090930
  Transmission Date: 20110411
  Serious: No
  Sender: FDA-Public Use
  Company Number: US-ASTRAZENECA-2009SE11345

PATIENT
  Age: 57 Year
  Sex: Male
  Weight: 83.9 kg

DRUGS (4)
  1. SYMBICORT [Suspect]
     Indication: COUGH
     Dosage: 160/4.5 MCG  1 PUFF
     Route: 055
  2. ZITHROMAX [Concomitant]
  3. ALLEGRA D 24 HOUR [Concomitant]
  4. FLONASE [Concomitant]

REACTIONS (3)
  - BREATH ODOUR [None]
  - PRODUCT TASTE ABNORMAL [None]
  - TONGUE DRY [None]
